FAERS Safety Report 24648435 (Version 1)
Quarter: 2024Q4

REPORT INFORMATION
  Report Type: Spontaneous
  Country: FR (occurrence: FR)
  Receive Date: 20241121
  Receipt Date: 20241121
  Transmission Date: 20250114
  Serious: Yes (Hospitalization)
  Sender: ANI
  Company Number: FR-ANIPHARMA-2024-FR-000201

PATIENT
  Age: 52 Year
  Sex: Female
  Weight: 65 kg

DRUGS (5)
  1. CANDESARTAN CILEXETIL [Suspect]
     Active Substance: CANDESARTAN CILEXETIL
     Indication: Hypertension
     Dosage: 4 MILLIGRAM, QD
     Route: 048
     Dates: start: 20230221
  2. RITUXIMAB [Suspect]
     Active Substance: RITUXIMAB
     Dosage: 1G (575ML BAG)
     Route: 042
     Dates: start: 20230710, end: 20230710
  3. MIRENA [Concomitant]
     Active Substance: LEVONORGESTREL
  4. CHOLECALCIFEROL [Concomitant]
     Active Substance: CHOLECALCIFEROL
  5. PREVENAR [Concomitant]
     Active Substance: PNEUMOCOCCAL 7-VALENT CONJUGATE VACCINE (DIPHTHERIA CRM197 PROTEIN)
     Dates: start: 20230613

REACTIONS (5)
  - Palatal oedema [Unknown]
  - Oral mucosal erythema [Unknown]
  - Oropharyngeal discomfort [Unknown]
  - Pruritus [Unknown]
  - Dysphagia [Unknown]

NARRATIVE: CASE EVENT DATE: 20230710
